FAERS Safety Report 8015475-9 (Version None)
Quarter: 2011Q4

REPORT INFORMATION
  Report Type: 
  Country: None (occurrence: None)
  Receive Date: 20111223
  Receipt Date: 20111213
  Transmission Date: 20120403
  Serious: Yes (Hospitalization)
  Sender: FDA-Public Use
  Company Number: CIP11000546

PATIENT
  Age: 61 Year
  Sex: Female

DRUGS (22)
  1. DECONSAL /00468401/ (CHLORPHENAMINE MALEATE, PSEUDOEPHEDRINE HYDROCHLO [Concomitant]
  2. BONIVA [Suspect]
     Indication: OSTEOPOROSIS
     Dosage: ORAL
     Route: 048
     Dates: start: 20051205, end: 20060208
  3. MIACALCIN [Concomitant]
  4. NEXIUM [Concomitant]
  5. CIPRO /00042702/ (CYPROHEPATDINE HYDROCHLORIDE) [Concomitant]
  6. CALCIUM CARBONATE [Concomitant]
  7. ASPIRIN [Concomitant]
  8. ACTONEL [Suspect]
     Indication: OSTEOPOROSIS
     Dosage: 5MG, DAILY, ORAL
     Route: 048
     Dates: start: 20110125
  9. LISINOPRIL [Concomitant]
  10. CORTISONE ACETATE [Concomitant]
  11. LEVAQUIN [Concomitant]
  12. MECLIZINE HC (MECLOZINE HYDROCHLORIDE) [Concomitant]
  13. FLUTICASONE PROPIONATE [Concomitant]
  14. CLARINEX /01202601/ (LORATADINE, PSEUDOEPHEDRINE SULFATE) [Concomitant]
  15. ERGOCALCIFEROL [Concomitant]
  16. ALBUTEROL [Concomitant]
  17. BENADRYL [Concomitant]
  18. ACTONEL [Suspect]
     Indication: OSTEOPOROSIS
     Dosage: 35 MG, ONCE WEEKLY, ORAL
     Route: 048
     Dates: start: 20021104, end: 20040309
  19. ULTRAM [Concomitant]
  20. ZYRTEC [Concomitant]
  21. NORVASC [Concomitant]
  22. NITROFLURANTON COX (NITROFLURATOIN) [Concomitant]

REACTIONS (27)
  - ORAL PAIN [None]
  - DENTAL CARIES [None]
  - LUDWIG ANGINA [None]
  - FACIAL PAIN [None]
  - DYSPHAGIA [None]
  - TOOTH ABSCESS [None]
  - GASTRIC ULCER [None]
  - DROOLING [None]
  - LOOSE TOOTH [None]
  - DEVICE BREAKAGE [None]
  - GINGIVITIS [None]
  - ABSCESS SOFT TISSUE [None]
  - ORAL PRURITUS [None]
  - SENSORY DISTURBANCE [None]
  - TOOTH DISORDER [None]
  - GASTROOESOPHAGEAL REFLUX DISEASE [None]
  - GASTROENTERITIS [None]
  - INFLUENZA [None]
  - ABSCESS DRAINAGE [None]
  - HYPOAESTHESIA ORAL [None]
  - MUSCULOSKELETAL STIFFNESS [None]
  - TOOTHACHE [None]
  - PARAESTHESIA ORAL [None]
  - SWELLING FACE [None]
  - LIP PAIN [None]
  - LYMPHADENOPATHY [None]
  - BURNING SENSATION [None]
